FAERS Safety Report 4588942-8 (Version None)
Quarter: 2005Q1

REPORT INFORMATION
  Report Type: 
  Country: None (occurrence: None)
  Receive Date: 20050216
  Receipt Date: 20050127
  Transmission Date: 20050727
  Serious: Yes (Other)
  Sender: FDA-Public Use
  Company Number: US_0502111723

PATIENT
  Age: 68 Year
  Sex: Female

DRUGS (2)
  1. HUMULIN N [Suspect]
     Dosage: 30 U DAY
  2. HUMULIN-HUMAN INSULIN 9RDNA) [Suspect]

REACTIONS (3)
  - BLOOD GLUCOSE INCREASED [None]
  - EYE HAEMORRHAGE [None]
  - PHARMACEUTICAL PRODUCT COMPLAINT [None]
